FAERS Safety Report 4969098-6 (Version None)
Quarter: 2006Q2

REPORT INFORMATION
  Report Type: 
  Country: None (occurrence: None)
  Receive Date: 20060411
  Receipt Date: 20050805
  Transmission Date: 20061013
  Serious: Yes (Hospitalization, Other)
  Sender: FDA-Public Use
  Company Number: US-MERCK-0508USA01489

PATIENT
  Age: 61 Year
  Sex: Female
  Weight: 64 kg

DRUGS (5)
  1. VIOXX [Suspect]
     Indication: OSTEOARTHRITIS
     Route: 048
     Dates: start: 20000101, end: 20040927
  2. VIOXX [Suspect]
     Indication: ARTHRALGIA
     Route: 048
     Dates: start: 20000101, end: 20040927
  3. ASPIRIN [Concomitant]
     Indication: HEADACHE
     Route: 065
  4. EXCEDRIN IB [Concomitant]
     Indication: HEADACHE
     Route: 065
  5. ALEVE [Concomitant]
     Indication: HEADACHE
     Route: 065

REACTIONS (18)
  - ARRHYTHMIA [None]
  - BLOOD CHOLESTEROL INCREASED [None]
  - CONFUSIONAL STATE [None]
  - DIZZINESS [None]
  - DREAMY STATE [None]
  - HYPERTENSION [None]
  - HYPOTENSION [None]
  - INFLUENZA [None]
  - ISCHAEMIC CEREBRAL INFARCTION [None]
  - MENOPAUSAL SYMPTOMS [None]
  - MENTAL IMPAIRMENT [None]
  - MIGRAINE [None]
  - RHINITIS ALLERGIC [None]
  - SLEEP DISORDER [None]
  - SNORING [None]
  - SPINAL OSTEOARTHRITIS [None]
  - STRESS [None]
  - VERTIGO POSITIONAL [None]
